FAERS Safety Report 6148200-7 (Version None)
Quarter: 2009Q2

REPORT INFORMATION
  Report Type: 
  Country: None (occurrence: None)
  Receive Date: 20090408
  Receipt Date: 20090327
  Transmission Date: 20091009
  Serious: Yes (Other)
  Sender: FDA-Public Use
  Company Number: US-ROCHE-597709

PATIENT
  Sex: Male
  Weight: 104.3 kg

DRUGS (4)
  1. CAPECITABINE [Suspect]
     Indication: COLORECTAL CANCER
     Route: 048
  2. CAPECITABINE [Suspect]
     Dosage: OTHER FORM:PILLS, DOSE REDUCED, DOSE: 07 PILLS DAILY, 02 WEEKS ON AND 01 WEEK OFF
     Route: 048
     Dates: start: 20081103
  3. CAPECITABINE [Suspect]
     Route: 048
     Dates: end: 20090102
  4. OXALIPLATIN [Concomitant]
     Route: 042

REACTIONS (6)
  - ABDOMINAL PAIN UPPER [None]
  - DECREASED APPETITE [None]
  - DIARRHOEA [None]
  - DISEASE PROGRESSION [None]
  - FATIGUE [None]
  - NAUSEA [None]
